FAERS Safety Report 5856636-4 (Version None)
Quarter: 2008Q3

REPORT INFORMATION
  Report Type: 
  Country: None (occurrence: None)
  Receive Date: 20080822
  Receipt Date: 20080822
  Transmission Date: 20090109
  Serious: Yes (Other)
  Sender: FDA-Public Use
  Company Number: None

PATIENT
  Sex: Female
  Weight: 68.0396 kg

DRUGS (1)
  1. CIPROFLOXACIN 500MG COLBALT [Suspect]
     Indication: URINARY TRACT INFECTION
     Dosage: ONE TWICE DAILY PO
     Route: 048
     Dates: start: 20080505, end: 20080515

REACTIONS (12)
  - ACTIVITIES OF DAILY LIVING IMPAIRED [None]
  - ANOREXIA [None]
  - ARTHRITIS [None]
  - CHILLS [None]
  - EMOTIONAL DISTRESS [None]
  - HEMIPARESIS [None]
  - LOSS OF EMPLOYMENT [None]
  - MALAISE [None]
  - MOVEMENT DISORDER [None]
  - MUSCULAR WEAKNESS [None]
  - TENDON DISORDER [None]
  - TENDON PAIN [None]
